FAERS Safety Report 6283909-6 (Version None)
Quarter: 2009Q3

REPORT INFORMATION
  Report Type: 
  Country: None (occurrence: None)
  Receive Date: 20090722
  Receipt Date: 20090722
  Transmission Date: 20100115
  Serious: Yes (Hospitalization)
  Sender: FDA-Public Use
  Company Number: None

PATIENT
  Sex: Female
  Weight: 68.0396 kg

DRUGS (2)
  1. AVELOX [Suspect]
     Indication: PROPHYLAXIS
     Dosage: 400 MG 1 TABLET DAILY PO
     Route: 048
     Dates: start: 20090701, end: 20090710
  2. AVELOX [Suspect]
     Indication: SINUS OPERATION
     Dosage: 400 MG 1 TABLET DAILY PO
     Route: 048
     Dates: start: 20090701, end: 20090710

REACTIONS (4)
  - BURSITIS [None]
  - MUSCULOSKELETAL PAIN [None]
  - PAIN IN EXTREMITY [None]
  - TENDONITIS [None]
